FAERS Safety Report 7785058-4 (Version None)
Quarter: 2011Q3

REPORT INFORMATION
  Report Type: 
  Country: None (occurrence: None)
  Receive Date: 20110929
  Receipt Date: 20110920
  Transmission Date: 20111222
  Serious: Yes (Hospitalization)
  Sender: FDA-Public Use
  Company Number: US-BIOGENIDEC-2011BI029540

PATIENT
  Sex: Female

DRUGS (3)
  1. AVONEX [Suspect]
     Indication: MULTIPLE SCLEROSIS
     Route: 030
     Dates: start: 20110701
  2. AVONEX [Suspect]
     Route: 030
     Dates: start: 20080920, end: 20101130
  3. AVONEX [Suspect]
     Route: 030
     Dates: start: 20000103, end: 20060904

REACTIONS (2)
  - SKIN ULCER [None]
  - PYREXIA [None]
